FAERS Safety Report 11782302 (Version 1)
Quarter: 2015Q4

REPORT INFORMATION
  Report Type: Spontaneous
  Country: US (occurrence: US)
  Receive Date: 20151127
  Receipt Date: 20151127
  Transmission Date: 20160305
  Serious: No
  Sender: FDA-Public Use
  Company Number: US-APOTEX-2014AP003386

PATIENT
  Sex: Female

DRUGS (1)
  1. NICOTINE EXTENDED RELEASE TRANSDERMAL FILM [Suspect]
     Active Substance: NICOTINE
     Indication: PRODUCT USED FOR UNKNOWN INDICATION
     Dosage: 21 MG, QD
     Route: 062
     Dates: start: 201309, end: 20140529

REACTIONS (1)
  - Product adhesion issue [Recovered/Resolved]

NARRATIVE: CASE EVENT DATE: 20140528
